FAERS Safety Report 5958045-6 (Version None)
Quarter: 2008Q4

REPORT INFORMATION
  Report Type: 
  Country: None (occurrence: None)
  Receive Date: 20081119
  Receipt Date: 20081110
  Transmission Date: 20090506
  Serious: Yes (Hospitalization)
  Sender: FDA-Public Use
  Company Number: A0736743A

PATIENT
  Age: 54 Year
  Sex: Female
  Weight: 104.5 kg

DRUGS (16)
  1. AVANDIA [Suspect]
     Indication: DIABETES MELLITUS
     Dosage: 8MG PER DAY
     Route: 048
     Dates: start: 20011101, end: 20070501
  2. AMARYL [Concomitant]
  3. GLUCOTROL [Concomitant]
  4. LASIX [Concomitant]
  5. PERCOCET [Concomitant]
  6. SOMA [Concomitant]
  7. ASPIRIN [Concomitant]
  8. GLIPIZIDE [Concomitant]
  9. DETROL [Concomitant]
  10. ACETAMINOPHEN AND OXYCODONE HCL [Concomitant]
  11. ACIPHEX [Concomitant]
  12. PROTONIX [Concomitant]
  13. LOPRESSOR [Concomitant]
  14. LIPITOR [Concomitant]
  15. DITROPAN [Concomitant]
  16. LOTRIMIN [Concomitant]

REACTIONS (6)
  - ARTERIOSCLEROSIS [None]
  - CARDIAC FAILURE CONGESTIVE [None]
  - CORONARY ARTERY DISEASE [None]
  - HEART INJURY [None]
  - MYOCARDIAL INFARCTION [None]
  - VENTRICULAR DYSFUNCTION [None]
